FAERS Safety Report 6647919-9 (Version None)
Quarter: 2010Q1

REPORT INFORMATION
  Report Type: 
  Country: None (occurrence: None)
  Receive Date: 20100318
  Receipt Date: 20100303
  Transmission Date: 20100710
  Serious: Yes (Other)
  Sender: FDA-Public Use
  Company Number: 2009-4489

PATIENT
  Age: 39 Year
  Sex: Male

DRUGS (1)
  1. SOMATULINE L.P.(LANREOTIDE AUTOGEL) [Suspect]
     Indication: PITUITARY TUMOUR BENIGN
     Dosage: 60MG (60 MG, 1 IN 3M) INTRAMUSCULAR
     Route: 030
     Dates: start: 20030227

REACTIONS (4)
  - GASTROINTESTINAL PAIN [None]
  - INCORRECT DRUG ADMINISTRATION DURATION [None]
  - INCORRECT ROUTE OF DRUG ADMINISTRATION [None]
  - INCORRECT STORAGE OF DRUG [None]
